APPROVED DRUG PRODUCT: NAPROXEN SODIUM
Active Ingredient: NAPROXEN SODIUM
Strength: EQ 200MG BASE
Dosage Form/Route: CAPSULE;ORAL
Application: A202807 | Product #001
Applicant: CATALENT PHARMA SOLUTIONS LLC
Approved: Jan 4, 2019 | RLD: No | RS: No | Type: OTC